APPROVED DRUG PRODUCT: HEPARIN SODIUM
Active Ingredient: HEPARIN SODIUM
Strength: 1,000 UNITS/ML
Dosage Form/Route: INJECTABLE;INJECTION
Application: A202957 | Product #001 | TE Code: AP
Applicant: SHENZHEN TECHDOW PHARMACEUTICAL CO LTD
Approved: Jun 12, 2014 | RLD: No | RS: No | Type: RX